FAERS Safety Report 25994872 (Version 2)
Quarter: 2025Q4

REPORT INFORMATION
  Report Type: Spontaneous
  Country: US (occurrence: US)
  Receive Date: 20251104
  Receipt Date: 20251215
  Transmission Date: 20260118
  Serious: Yes (Other)
  Sender: TAKEDA
  Company Number: US-TAKEDA-2025TUS094249

PATIENT
  Sex: Female
  Weight: 95 kg

DRUGS (8)
  1. VYVANSE [Suspect]
     Active Substance: LISDEXAMFETAMINE DIMESYLATE
     Indication: Attention deficit hyperactivity disorder
     Dosage: 70 MILLIGRAM, QD
  2. VYVANSE [Suspect]
     Active Substance: LISDEXAMFETAMINE DIMESYLATE
     Indication: Overweight
     Dosage: 70 MILLIGRAM, QD
  3. VYVANSE [Suspect]
     Active Substance: LISDEXAMFETAMINE DIMESYLATE
     Indication: Type 2 diabetes mellitus
  4. METHYLPHENIDATE [Suspect]
     Active Substance: METHYLPHENIDATE
     Indication: Product used for unknown indication
     Dosage: UNK
  5. ATOMOXETINE [Suspect]
     Active Substance: ATOMOXETINE
     Indication: Product used for unknown indication
     Dosage: UNK
  6. DEXMETHYLPHENIDATE HYDROCHLORIDE [Suspect]
     Active Substance: DEXMETHYLPHENIDATE HYDROCHLORIDE
     Indication: Product used for unknown indication
     Dosage: UNK
  7. LATUDA [Concomitant]
     Active Substance: LURASIDONE HYDROCHLORIDE
     Dosage: 80 MILLIGRAM, QD
  8. LITHIUM [Concomitant]
     Active Substance: LITHIUM
     Indication: Blood cholesterol abnormal
     Dosage: 300 MILLIGRAM, TID

REACTIONS (13)
  - Anaphylactic shock [Unknown]
  - Hallucination [Unknown]
  - Suicidal ideation [Unknown]
  - Disturbance in attention [Unknown]
  - Product dose omission issue [Unknown]
  - Insurance issue [Unknown]
  - Product use issue [Unknown]
  - Aggression [Unknown]
  - Chest pain [Unknown]
  - Dyspnoea [Unknown]
  - Vision blurred [Unknown]
  - Headache [Unknown]
  - Urticaria [Unknown]
